FAERS Safety Report 18924120 (Version 4)
Quarter: 2021Q3

REPORT INFORMATION
  Report Type: Spontaneous
  Country: JP (occurrence: JP)
  Receive Date: 20210222
  Receipt Date: 20210913
  Transmission Date: 20211014
  Serious: Yes (Death, Hospitalization, Other)
  Sender: FDA-Public Use
  Company Number: JP-ALLERGAN-2107122US

PATIENT
  Sex: Female

DRUGS (1)
  1. BOTOX [Suspect]
     Active Substance: ONABOTULINUMTOXINA
     Indication: MUSCLE SPASTICITY
     Dosage: 300 UNITS, SINGLE
     Route: 030
     Dates: start: 20201112, end: 20201112

REACTIONS (6)
  - Pulmonary oedema [Fatal]
  - Respiratory failure [Fatal]
  - Cardiac failure congestive [Fatal]
  - Metastases to pleura [Fatal]
  - Thyroid neoplasm [Fatal]
  - Pleural effusion [Fatal]

NARRATIVE: CASE EVENT DATE: 20201201
